FAERS Safety Report 20459343 (Version 2)
Quarter: 2022Q1

REPORT INFORMATION
  Report Type: Spontaneous
  Country: US (occurrence: US)
  Receive Date: 20220211
  Receipt Date: 20220228
  Transmission Date: 20220423
  Serious: Yes (Hospitalization, Other)
  Sender: FDA-Public Use
  Company Number: US-GLAXOSMITHKLINE-US2022AMR023333

PATIENT
  Age: 53 Year
  Sex: Female
  Weight: 77.1 kg

DRUGS (2)
  1. SOTROVIMAB [Suspect]
     Active Substance: SOTROVIMAB
     Indication: COVID-19
     Dosage: 500 MG, ONCE
     Route: 042
     Dates: start: 20220130, end: 20220130
  2. HYDROCODONE BITARTRATE AND ACETAMINOPHEN [Concomitant]
     Active Substance: ACETAMINOPHEN\HYDROCODONE BITARTRATE
     Indication: Product used for unknown indication
     Dosage: UNK, 5/325
     Dates: start: 20220130, end: 20220130

REACTIONS (8)
  - Dyspnoea [Unknown]
  - Pneumonia [Unknown]
  - COVID-19 [Unknown]
  - Ill-defined disorder [Unknown]
  - Culture urine positive [Unknown]
  - Blood culture positive [Unknown]
  - Cardiomegaly [Unknown]
  - Drug ineffective [Unknown]

NARRATIVE: CASE EVENT DATE: 20220130
